FAERS Safety Report 20305947 (Version 4)
Quarter: 2022Q3

REPORT INFORMATION
  Report Type: Report from Study
  Country: US (occurrence: US)
  Receive Date: 20220106
  Receipt Date: 20220902
  Transmission Date: 20221027
  Serious: No
  Sender: FDA-Public Use
  Company Number: US-NOVARTISTESTPH-NVSC2022US001412

PATIENT
  Age: 5 Year
  Sex: Male

DRUGS (2)
  1. ILARIS [Suspect]
     Active Substance: CANAKINUMAB
     Indication: Still^s disease
     Dosage: 100 MG (EVERY 4 WEEKS)
     Route: 058
     Dates: start: 20201116
  2. ILARIS [Suspect]
     Active Substance: CANAKINUMAB
     Dosage: 100 MG, OTHER (EVERY 4 WEEKS)
     Route: 058
     Dates: start: 2020

REACTIONS (3)
  - Nervousness [Unknown]
  - Injection site pain [Unknown]
  - Ear infection [Unknown]

NARRATIVE: CASE EVENT DATE: 20211206
